FAERS Safety Report 11869039 (Version 2)
Quarter: 2016Q1

REPORT INFORMATION
  Report Type: Spontaneous
  Country: GB (occurrence: GB)
  Receive Date: 20151225
  Receipt Date: 20160127
  Transmission Date: 20160526
  Serious: Yes (Other)
  Sender: FDA-Public Use
  Company Number: GB-AMGEN-GBRSP2015136756

PATIENT
  Sex: Female
  Weight: 48 kg

DRUGS (1)
  1. MIMPARA [Suspect]
     Active Substance: CINACALCET HYDROCHLORIDE
     Indication: HYPERPARATHYROIDISM SECONDARY
     Dosage: 15 MG, QOD
     Route: 048
     Dates: start: 20131014

REACTIONS (4)
  - Parathyroid disorder [Unknown]
  - Drug intolerance [Recovered/Resolved]
  - Neck exploration [Unknown]
  - Nausea [Recovered/Resolved]
